FAERS Safety Report 24193225 (Version 1)
Quarter: 2024Q3

REPORT INFORMATION
  Report Type: Report from Study
  Country: ES (occurrence: ES)
  Receive Date: 20240809
  Receipt Date: 20240809
  Transmission Date: 20241017
  Serious: Yes (Hospitalization)
  Sender: TEVA
  Company Number: None

PATIENT
  Age: 72 Year
  Sex: Male

DRUGS (9)
  1. FENTANYL [Interacting]
     Active Substance: FENTANYL\FENTANYL CITRATE
     Indication: Cancer pain
     Dosage: 1 PATCH/72H, FENTANYL 50 MICROGRAMS/H 5
     Route: 062
     Dates: start: 20231106
  2. NALOXONE HYDROCHLORIDE\OXYCODONE HYDROCHLORIDE [Interacting]
     Active Substance: NALOXONE HYDROCHLORIDE\OXYCODONE HYDROCHLORIDE
     Indication: Cancer pain
     Dosage: 1 TABLET/12H, 20 MG/10 MG EXTENDED-RELEASE TABLETS
     Route: 048
     Dates: start: 20231110
  3. NALOXONE HYDROCHLORIDE\OXYCODONE HYDROCHLORIDE [Interacting]
     Active Substance: NALOXONE HYDROCHLORIDE\OXYCODONE HYDROCHLORIDE
     Indication: Cancer pain
     Dosage: 1 TABLET/12H, 40 MG/20 MG EXTENDED-RELEASE TABLETS, 56 TABLETS
     Route: 048
     Dates: start: 20231023
  4. sodium citrate sodium lauryl sulfate [Concomitant]
     Indication: Product used for unknown indication
     Dosage: 1 ENEMA/3 DAYS
     Route: 054
  5. ACTIQ [Interacting]
     Active Substance: FENTANYL CITRATE
     Indication: Cancer pain
     Dosage: 1 TABLET/24H, SUCKING TABLETS WITH INTEGRATED MOUTH APPLICATOR, 30 TABLETS
     Route: 048
     Dates: start: 20231106, end: 20231124
  6. LACTULOSE [Concomitant]
     Active Substance: LACTULOSE
     Indication: Product used for unknown indication
     Dosage: 1 SACHET/24H, ORAL SOLUTION/SUSPENSION 10 SACHETS
     Route: 048
  7. SIMVASTATIN [Concomitant]
     Active Substance: SIMVASTATIN
     Indication: Product used for unknown indication
     Dosage: 1 TABLET/24H, 28 TABLETS
     Route: 048
  8. BROMAZEPAM [Concomitant]
     Active Substance: BROMAZEPAM
     Indication: Product used for unknown indication
     Dosage: 1 CAPSULE/12H, 30 CAPSULES
     Route: 048
  9. HODERNAL [Concomitant]
     Indication: Product used for unknown indication
     Dosage: 1 BOTTLE OF 300 ML
     Route: 048

REACTIONS (1)
  - Serotonin syndrome [Recovered/Resolved]

NARRATIVE: CASE EVENT DATE: 20231107
